FAERS Safety Report 5281800-5 (Version None)
Quarter: 2007Q1

REPORT INFORMATION
  Report Type: 
  Country: None (occurrence: None)
  Receive Date: 20070330
  Receipt Date: 20070326
  Transmission Date: 20070707
  Serious: Yes (Life-Threatening, Hospitalization)
  Sender: FDA-Public Use
  Company Number: FI-AVENTIS-200712585GDDC

PATIENT
  Age: 62 Year
  Sex: Female

DRUGS (5)
  1. DOCETAXEL [Suspect]
     Route: 042
     Dates: start: 20060905, end: 20060905
  2. CAPECITABINE [Suspect]
     Dosage: DOSE: 1500 MG  TIMES 2
     Route: 048
     Dates: start: 20060905, end: 20060914
  3. CHLORDIAZEPOXIDE HCL [Concomitant]
  4. BURANA [Concomitant]
  5. METOPRAM [Concomitant]

REACTIONS (2)
  - HAEMORRHAGE INTRACRANIAL [None]
  - HEADACHE [None]
